FAERS Safety Report 23467280 (Version 2)
Quarter: 2024Q1

REPORT INFORMATION
  Report Type: Spontaneous
  Country: US (occurrence: US)
  Receive Date: 20240201
  Receipt Date: 20240307
  Transmission Date: 20240409
  Serious: No
  Sender: FDA-Public Use
  Company Number: US-PFIZER INC-PV202400013931

PATIENT
  Age: 76 Year
  Sex: Female

DRUGS (10)
  1. IBRANCE [Suspect]
     Active Substance: PALBOCICLIB
     Indication: Breast cancer female
     Dosage: TAKE 1 TABLET ONCE DAILY FOR 21 DAYS EVERY 28 DAY CYCLE
     Route: 048
     Dates: start: 20240110
  2. ALLEGRA ALLERGY [Concomitant]
     Active Substance: FEXOFENADINE HYDROCHLORIDE
     Dosage: UNK
  3. CENTRUM GENDER [Concomitant]
     Dosage: WOMEN
  4. OMEGA 3 KRILL [Concomitant]
     Dosage: UNK
  5. OSTEO BI-FLEX [ASCORBIC ACID;BOSWELLIA SERRATA RESIN;CHONDROITIN SULFA [Concomitant]
     Dosage: UNK
  6. HERBALS\TURMERIC [Concomitant]
     Active Substance: HERBALS\TURMERIC
     Dosage: UNK
  7. VITAMIN B12 [Concomitant]
     Active Substance: CYANOCOBALAMIN
     Dosage: 1000 TR
  8. VITAMIN D3 [Concomitant]
     Active Substance: CHOLECALCIFEROL
     Dosage: UNK
  9. FISH OIL [Concomitant]
     Active Substance: FISH OIL
  10. GAUZE PAD [Concomitant]
     Dosage: 2^X2^

REACTIONS (1)
  - Peripheral swelling [Unknown]
